FAERS Safety Report 6148117-8 (Version None)
Quarter: 2009Q2

REPORT INFORMATION
  Report Type: 
  Country: None (occurrence: None)
  Receive Date: 20090403
  Receipt Date: 20090323
  Transmission Date: 20091009
  Serious: No
  Sender: FDA-Public Use
  Company Number: 2009-192733-NL

PATIENT
  Age: 32 Year
  Sex: Male

DRUGS (8)
  1. NANDROLONE DECANOATE [Suspect]
     Indication: PROTEIN ANABOLISM INCREASED
     Dosage: DF
  2. SUSTANON (SEE ATTACHED PAGES FOR ADDITIONAL SUSPECT DRUGS) [Suspect]
     Indication: PROTEIN ANABOLISM INCREASED
     Dosage: DF
  3. METHYLTESTOSTERONE [Suspect]
     Dosage: DF
  4. FLUOXYMESTERONE [Suspect]
     Dosage: DF
  5. MESTANOLONE (SEE ATTACHED PAGES FOR ADDITIONAL SUSPECT DRUGS) [Suspect]
     Dosage: DF
  6. STANOZOLOL [Suspect]
     Dosage: DF
  7. TESTOSTERONE CYPIONATE [Suspect]
     Dosage: DF
  8. TESTOSTERONE ENANTHATE [Suspect]
     Dosage: DF

REACTIONS (2)
  - DRUG ABUSE [None]
  - SECONDARY HYPOGONADISM [None]
